FAERS Safety Report 10034381 (Version 1)
Quarter: 2014Q1

REPORT INFORMATION
  Report Type: Spontaneous
  Country: US (occurrence: None)
  Receive Date: 20140324
  Receipt Date: 20140324
  Transmission Date: 20141002
  Serious: Yes (Other)
  Sender: FDA-Public Use
  Company Number: None

PATIENT
  Age: 43 Year
  Sex: Female

DRUGS (2)
  1. VALACYCLOVIR HCL [Suspect]
     Indication: HERPES ZOSTER
     Dosage: 1 TABLET 3X/DAY, THRE TIMES DAILY, TAKEN BY MOUTH
     Route: 048
  2. VALACYCLOVIR HCL [Suspect]
     Indication: HERPES ZOSTER
     Dosage: 1 TABLET 3X/DAY, THRE TIMES DAILY, TAKEN BY MOUTH
     Route: 048

REACTIONS (2)
  - Fatigue [None]
  - Abnormal dreams [None]
